FAERS Safety Report 7861166-4 (Version None)
Quarter: 2011Q4

REPORT INFORMATION
  Report Type: 
  Country: None (occurrence: None)
  Receive Date: 20111027
  Receipt Date: 20111024
  Transmission Date: 20120403
  Serious: No
  Sender: FDA-Public Use
  Company Number: US-PFIZER INC-2011172224

PATIENT
  Sex: Male

DRUGS (5)
  1. EFFEXOR XR [Suspect]
     Dosage: WEANED OFF (DOSE UNKNOWN)
     Dates: start: 20110609, end: 20110711
  2. LISINOPRIL [Concomitant]
     Dosage: UNK
  3. ASPIRIN [Concomitant]
     Dosage: 81 UNK, UNK
  4. EFFEXOR XR [Suspect]
     Indication: DEPRESSION
     Dosage: 150 MG, UNK
     Dates: start: 20080310, end: 20110608
  5. FISH OIL [Concomitant]
     Dosage: UNK

REACTIONS (3)
  - WITHDRAWAL SYNDROME [None]
  - DIZZINESS [None]
  - FEELING ABNORMAL [None]
